FAERS Safety Report 4338090-7 (Version None)
Quarter: 2004Q2

REPORT INFORMATION
  Report Type: 
  Country: None (occurrence: None)
  Receive Date: 20040413
  Receipt Date: 20040413
  Transmission Date: 20050107
  Serious: Yes (Other)
  Sender: FDA-Public Use
  Company Number: None

PATIENT
  Sex: Male

DRUGS (1)
  1. ZITHROMAX [Suspect]
     Indication: INFECTION
     Dosage: 500 MG 1ST DAY 250 MG FOR 4 DAYS

REACTIONS (2)
  - DIARRHOEA [None]
  - GASTROINTESTINAL DISORDER [None]
